FAERS Safety Report 4849406-7 (Version None)
Quarter: 2005Q4

REPORT INFORMATION
  Report Type: 
  Country: None (occurrence: None)
  Receive Date: 20051207
  Receipt Date: 20051124
  Transmission Date: 20060501
  Serious: Yes (Hospitalization, Other)
  Sender: FDA-Public Use
  Company Number: 2005161543

PATIENT
  Age: 32 Year
  Sex: Male

DRUGS (1)
  1. SOBELIN (CLINDAMYCIN HYDROCHLORIDE) [Suspect]
     Indication: GINGIVITIS
     Dosage: 1200 MG (300 MG, 1 IN 4 D), ORAL
     Route: 048
     Dates: start: 20050301, end: 20050101

REACTIONS (12)
  - ABDOMINAL PAIN [None]
  - ASTHENIA [None]
  - CONFUSIONAL STATE [None]
  - DISTURBANCE IN ATTENTION [None]
  - DIZZINESS [None]
  - GASTRITIS [None]
  - HEADACHE [None]
  - MONOCYTE COUNT INCREASED [None]
  - MUSCLE SPASMS [None]
  - MUSCLE TWITCHING [None]
  - NEUTROPHIL PERCENTAGE INCREASED [None]
  - T-LYMPHOCYTE COUNT DECREASED [None]
